FAERS Safety Report 14723946 (Version 1)
Quarter: 2018Q2

REPORT INFORMATION
  Report Type: Spontaneous
  Country: US (occurrence: US)
  Receive Date: 20180405
  Receipt Date: 20180405
  Transmission Date: 20180711
  Serious: No
  Sender: FDA-Public Use
  Company Number: US-NEUROCRINE BIOSCIENCES INC.-2018NBI00296

PATIENT
  Sex: Male

DRUGS (4)
  1. INGREZZA [Suspect]
     Active Substance: VALBENAZINE
     Dosage: 80MG ALTERNATING WITH 120MG
  2. INGREZZA [Suspect]
     Active Substance: VALBENAZINE
     Indication: PRODUCT USED FOR UNKNOWN INDICATION
  3. INGREZZA [Suspect]
     Active Substance: VALBENAZINE
  4. INGREZZA [Suspect]
     Active Substance: VALBENAZINE
     Dosage: 80MG ALTERNATING WITH 120MG

REACTIONS (2)
  - Off label use [Unknown]
  - Drug effect decreased [None]
